FAERS Safety Report 6081698-1 (Version None)
Quarter: 2009Q1

REPORT INFORMATION
  Report Type: 
  Country: None (occurrence: None)
  Receive Date: 20090218
  Receipt Date: 20081125
  Transmission Date: 20090719
  Serious: Yes (Death, Life-Threatening, Hospitalization)
  Sender: FDA-Public Use
  Company Number: JP-PFIZER INC-2008150191

PATIENT

DRUGS (14)
  1. CAMPTOSAR [Suspect]
     Indication: COLON CANCER
     Dosage: 160 MG
     Route: 041
     Dates: start: 20081106, end: 20081120
  2. ERBITUX [Suspect]
     Indication: COLON CANCER
     Dosage: 570 MG (400 MG/M2)
     Route: 041
     Dates: start: 20081106, end: 20081106
  3. ERBITUX [Suspect]
     Dosage: 356 MG (250 MG/M2)
     Route: 041
     Dates: start: 20081113, end: 20081120
  4. CHLOR-TRIMETON [Concomitant]
     Indication: PREMEDICATION
     Dosage: 10 MG, UNK
     Route: 042
     Dates: start: 20081106, end: 20081120
  5. DEXAMETHASONE SODIUM PHOSPHATE [Concomitant]
     Indication: PREMEDICATION
     Dosage: 8 MG, UNK
     Route: 042
     Dates: start: 20081106, end: 20081120
  6. KYTRIL [Concomitant]
     Indication: PREMEDICATION
     Dosage: 3 MG, UNK
     Route: 017
     Dates: start: 20081106, end: 20081120
  7. AMARYL [Concomitant]
     Indication: DIABETES MELLITUS
     Dosage: 1 MG, UNK
     Route: 048
     Dates: start: 20081106, end: 20081123
  8. MEVALOTIN [Concomitant]
     Indication: HYPERLIPIDAEMIA
     Dosage: 10 MG, UNK
     Route: 048
     Dates: start: 20081106, end: 20081123
  9. AMLODIN [Concomitant]
     Indication: HYPERTENSION
     Dosage: 5 MG, UNK
     Route: 048
     Dates: start: 20081106, end: 20081123
  10. FAMOTIDINE [Concomitant]
     Indication: GASTRITIS
     Dosage: 40 MG, UNK
     Route: 048
     Dates: start: 20081106, end: 20081124
  11. DOPAMINE HYDROCHLORIDE [Concomitant]
     Dosage: 4 ML, UNK
     Route: 041
     Dates: start: 20081124, end: 20081125
  12. WYPAX [Concomitant]
     Route: 041
     Dates: start: 20081125, end: 20081125
  13. SOLU-CORTEF [Concomitant]
     Dosage: 100 MG, 2X/DAY
     Route: 041
     Dates: start: 20081125, end: 20081125
  14. BOSMIN [Concomitant]
     Dosage: 3 DF, UNK
     Route: 041
     Dates: start: 20081125, end: 20081125

REACTIONS (4)
  - DIARRHOEA [None]
  - LEUKOPENIA [None]
  - PLATELET COUNT DECREASED [None]
  - SEPSIS [None]
